FAERS Safety Report 6241456-1 (Version None)
Quarter: 2009Q2

REPORT INFORMATION
  Report Type: 
  Country: None (occurrence: None)
  Receive Date: 20090623
  Receipt Date: 20040722
  Transmission Date: 20091009
  Serious: Yes (Hospitalization)
  Sender: FDA-Public Use
  Company Number: ES-ROCHE-340792

PATIENT
  Sex: Female
  Weight: 60.7 kg

DRUGS (82)
  1. DACLIZUMAB [Suspect]
     Dosage: BASELINE VISIT.
     Route: 042
     Dates: start: 20030425
  2. DACLIZUMAB [Suspect]
     Dosage: FORM: VIALS.
     Route: 042
     Dates: start: 20030509
  3. MYCOPHENOLATE MOFETIL [Suspect]
     Dosage: FORMULATION: VIAL
     Route: 042
     Dates: start: 20030425, end: 20030425
  4. MYCOPHENOLATE MOFETIL [Suspect]
     Route: 048
     Dates: start: 20030426
  5. MYCOPHENOLATE MOFETIL [Suspect]
     Route: 048
     Dates: start: 20030529
  6. MYCOPHENOLATE MOFETIL [Suspect]
     Route: 048
     Dates: start: 20030708
  7. MYCOPHENOLATE MOFETIL [Suspect]
     Route: 048
     Dates: start: 20030804
  8. MYCOPHENOLATE MOFETIL [Suspect]
     Route: 048
     Dates: start: 20030914
  9. MYCOPHENOLATE MOFETIL [Suspect]
     Route: 048
     Dates: start: 20031217
  10. MYCOPHENOLATE MOFETIL [Suspect]
     Route: 048
     Dates: start: 20040520
  11. MYCOPHENOLATE MOFETIL [Suspect]
     Route: 048
     Dates: start: 20040525
  12. MYCOPHENOLATE MOFETIL [Suspect]
     Route: 048
     Dates: start: 20041229
  13. MYCOPHENOLATE MOFETIL [Suspect]
     Route: 048
     Dates: start: 20050726
  14. SIROLIMUS [Suspect]
     Dosage: DRUG NAME: RAPAMICIN
     Route: 048
     Dates: start: 20030425, end: 20030708
  15. SIROLIMUS [Suspect]
     Route: 048
     Dates: start: 20030711, end: 20040629
  16. SIROLIMUS [Suspect]
     Route: 048
     Dates: start: 20040630
  17. SIROLIMUS [Suspect]
     Route: 048
     Dates: start: 20040722, end: 20041104
  18. SIROLIMUS [Suspect]
     Route: 048
     Dates: start: 20041105, end: 20041228
  19. SIROLIMUS [Suspect]
     Route: 048
     Dates: start: 20041229, end: 20050725
  20. SIROLIMUS [Suspect]
     Route: 048
     Dates: start: 20050726
  21. PREDNISONE [Suspect]
     Route: 048
     Dates: start: 20030427, end: 20031113
  22. PREDNISONE [Suspect]
     Route: 048
     Dates: start: 20031114
  23. PREDNISONE [Suspect]
     Route: 048
     Dates: start: 20031212
  24. 6ALPHA-METHYLPREDNISOLONE [Suspect]
     Dosage: DRUG NAME: 6-METIL-PREDNISOLONE
     Route: 042
     Dates: start: 20030425
  25. 6ALPHA-METHYLPREDNISOLONE [Suspect]
     Dosage: FREQUENCY REPORTED AS: 1 PER 1 MI
     Route: 042
     Dates: start: 20030426, end: 20030427
  26. PANTOPRAZOLE SODIUM [Concomitant]
     Route: 048
     Dates: start: 20030425
  27. FOLIC ACID [Concomitant]
     Route: 048
     Dates: start: 20030602
  28. VIT B12 [Concomitant]
     Route: 048
     Dates: start: 20030424
  29. VIT B12 [Concomitant]
     Route: 048
     Dates: start: 20030602
  30. FE [Concomitant]
     Route: 048
     Dates: start: 20030602
  31. ATORVASTATIN CALCIUM [Concomitant]
     Route: 048
     Dates: start: 20030515, end: 20030625
  32. ATORVASTATIN CALCIUM [Concomitant]
     Route: 048
     Dates: start: 20040316, end: 20040717
  33. ATORVASTATIN CALCIUM [Concomitant]
     Route: 048
     Dates: start: 20040722
  34. ATENOLOL [Concomitant]
     Route: 048
     Dates: start: 20030509, end: 20030622
  35. ATENOLOL [Concomitant]
     Route: 048
     Dates: start: 20030623, end: 20030625
  36. ATENOLOL [Concomitant]
     Route: 048
     Dates: start: 20030627, end: 20030914
  37. ATENOLOL [Concomitant]
     Route: 048
     Dates: start: 20030915, end: 20040528
  38. ATENOLOL [Concomitant]
     Route: 048
     Dates: start: 20040529
  39. ATENOLOL [Concomitant]
     Route: 048
     Dates: start: 20040530
  40. ATENOLOL [Concomitant]
     Route: 048
     Dates: start: 20040531
  41. TRIMETHOPRIM + SULFAMETHOXAZOLE [Concomitant]
     Route: 048
     Dates: start: 20030428
  42. TRIMETHOPRIM + SULFAMETHOXAZOLE [Concomitant]
     Route: 048
     Dates: start: 20031006, end: 20031114
  43. TRIMETHOPRIM + SULFAMETHOXAZOLE [Concomitant]
     Route: 048
     Dates: start: 20040525
  44. TRIMETHOPRIM + SULFAMETHOXAZOLE [Concomitant]
     Route: 048
     Dates: start: 20040616
  45. LOSARTAN POTASSIUM [Concomitant]
     Route: 048
     Dates: start: 20030818, end: 20030901
  46. LOSARTAN POTASSIUM [Concomitant]
     Route: 048
     Dates: start: 20031030
  47. SODIUM HYDROGEN PHOSPHATE [Concomitant]
     Route: 048
     Dates: start: 20030512
  48. CALCITRIOL [Concomitant]
     Route: 048
     Dates: start: 20030526
  49. DARBEPOETIN ALFA [Concomitant]
     Route: 058
     Dates: start: 20030512
  50. DARBEPOETIN ALFA [Concomitant]
     Dosage: FORMULATION: VIAL
     Route: 058
     Dates: start: 20030512
  51. DARBEPOETIN ALFA [Concomitant]
     Route: 058
     Dates: start: 20030709, end: 20030807
  52. DARBEPOETIN ALFA [Concomitant]
     Route: 058
     Dates: start: 20030922, end: 20040315
  53. DARBEPOETIN ALFA [Concomitant]
     Dosage: FORMULATION: VIAL
     Route: 058
     Dates: start: 20040316, end: 20040519
  54. DARBEPOETIN ALFA [Concomitant]
     Route: 058
     Dates: start: 20040520, end: 20040715
  55. DARBEPOETIN ALFA [Concomitant]
     Route: 058
     Dates: start: 20040716, end: 20041105
  56. TORASEMIDE [Concomitant]
     Route: 048
     Dates: start: 20030721
  57. TORASEMIDE [Concomitant]
     Route: 048
     Dates: start: 20030919
  58. TORASEMIDE [Concomitant]
     Route: 048
     Dates: start: 20030922, end: 20031222
  59. TORASEMIDE [Concomitant]
     Route: 048
     Dates: start: 20040427
  60. TORASEMIDE [Concomitant]
     Route: 048
     Dates: start: 20040622
  61. LOPERAMIDE HYDROCHLORIDE [Concomitant]
     Route: 048
     Dates: start: 20031222
  62. LORMETAZEPAM [Concomitant]
     Route: 048
     Dates: start: 20030904
  63. IRON NOS [Concomitant]
     Dosage: REPORTED AS IRON 3+ (SUCCINAL CASEINE).
     Dates: start: 20030502, end: 20050525
  64. CALCIUM FOLINATE [Concomitant]
     Dates: start: 20030424
  65. SODIUM NOS [Concomitant]
     Dosage: REPORTED AS SODIUM ALONDRONATE.
     Dates: start: 20030818, end: 20061129
  66. CEFIXIMA [Concomitant]
     Route: 048
     Dates: start: 20030922, end: 20030926
  67. CIPROFLOXACIN [Concomitant]
     Dosage: FORMULATION: VIAL
     Route: 042
     Dates: start: 20030502, end: 20030502
  68. CIPROFLOXACIN [Concomitant]
     Dosage: UNITS: GM
     Route: 048
     Dates: start: 20030503, end: 20030515
  69. CLOXACILLIN [Concomitant]
     Dosage: DRUG NAME: CLOXACILIN FORMULATION: VIAL
     Route: 042
     Dates: start: 20030425, end: 20030429
  70. CUROXIME [Concomitant]
     Dosage: FORMULATION: VIAL
     Route: 042
     Dates: start: 20030425, end: 20030529
  71. FUROSEMIDE [Concomitant]
     Route: 042
     Dates: start: 20030426, end: 20030502
  72. FUROSEMIDE [Concomitant]
     Route: 042
     Dates: start: 20040427
  73. FUROSEMIDE [Concomitant]
     Route: 048
     Dates: start: 20030503
  74. FUROSEMIDE [Concomitant]
     Route: 048
     Dates: start: 20030504
  75. FUROSEMIDE [Concomitant]
     Route: 048
     Dates: start: 20030512, end: 20030522
  76. GENTAMICIN [Concomitant]
     Route: 042
     Dates: start: 20030625, end: 20030626
  77. GENTAMICIN [Concomitant]
     Route: 042
     Dates: start: 20030627, end: 20030702
  78. PRAVASTATIN [Concomitant]
     Route: 048
     Dates: start: 20030818, end: 20031222
  79. VANCOMICINA [Concomitant]
     Dosage: FORMULATION: VIAL
     Route: 042
     Dates: start: 20030625, end: 20030626
  80. VANCOMICINA [Concomitant]
     Route: 042
     Dates: start: 20030627, end: 20030702
  81. VANCOMICINA [Concomitant]
     Route: 042
     Dates: start: 20040528
  82. VANCOMICINA [Concomitant]
     Route: 042
     Dates: start: 20040607, end: 20040609

REACTIONS (3)
  - ALPHA HAEMOLYTIC STREPTOCOCCAL INFECTION [None]
  - PERITONITIS [None]
  - RESPIRATORY TRACT INFECTION [None]
